FAERS Safety Report 4714687-7 (Version None)
Quarter: 2005Q3

REPORT INFORMATION
  Report Type: 
  Country: None (occurrence: None)
  Receive Date: 20050714
  Receipt Date: 20050714
  Transmission Date: 20060218
  Serious: Yes (Hospitalization, Disabling)
  Sender: FDA-Public Use
  Company Number: None

PATIENT
  Age: 65 Year
  Sex: Female
  Weight: 90.7 kg

DRUGS (1)
  1. CEFTRIAXONE [Suspect]
     Indication: CHOLECYSTECTOMY
     Dosage: 1 GM Q24 H IV
     Route: 042
     Dates: start: 20050308, end: 20050311

REACTIONS (6)
  - BLOOD BILIRUBIN INCREASED [None]
  - DIALYSIS [None]
  - HAEMOLYTIC ANAEMIA [None]
  - PYREXIA [None]
  - RENAL FAILURE [None]
  - WHITE BLOOD CELL COUNT INCREASED [None]
